FAERS Safety Report 7790176-0 (Version None)
Quarter: 2011Q3

REPORT INFORMATION
  Report Type: 
  Country: None (occurrence: None)
  Receive Date: 20110930
  Receipt Date: 20101018
  Transmission Date: 20111222
  Serious: No
  Sender: FDA-Public Use
  Company Number: US-ASTRAZENECA-2010SE49267

PATIENT
  Age: 63 Year
  Sex: Female
  Weight: 66.7 kg

DRUGS (1)
  1. ARIMIDEX [Suspect]
     Indication: BREAST CANCER
     Route: 048
     Dates: start: 20080401

REACTIONS (3)
  - HYPOTHYROIDISM [None]
  - NASOPHARYNGITIS [None]
  - BLOOD CHOLESTEROL INCREASED [None]
